FAERS Safety Report 8160404-0 (Version None)
Quarter: 2012Q1

REPORT INFORMATION
  Report Type: 
  Country: None (occurrence: None)
  Receive Date: 20120223
  Receipt Date: 20120217
  Transmission Date: 20120608
  Serious: Yes (Other)
  Sender: FDA-Public Use
  Company Number: BR-PFIZER INC-2009274675

PATIENT
  Age: 66 Year
  Sex: Female
  Weight: 66 kg

DRUGS (2)
  1. LOSARTAN POTASSIUM AND HYDROCHLOROTHIAZIDE [Concomitant]
     Dosage: UNK
  2. XALATAN [Suspect]
     Dosage: 1 DROP AT NIGHT
     Route: 047

REACTIONS (3)
  - HYPERTENSION [None]
  - EYE IRRITATION [None]
  - OCULAR HYPERAEMIA [None]
